FAERS Safety Report 14007465 (Version 1)
Quarter: 2017Q3

REPORT INFORMATION
  Report Type: Spontaneous
  Country: AU (occurrence: AU)
  Receive Date: 20170925
  Receipt Date: 20170925
  Transmission Date: 20171128
  Serious: No
  Sender: FDA-Public Use
  Company Number: None

PATIENT
  Age: 16 Year
  Sex: Male
  Weight: 65 kg

DRUGS (6)
  1. PENICILLIN [Concomitant]
     Active Substance: PENICILLIN
  2. MULTI VITAMINS [Concomitant]
     Active Substance: VITAMINS
  3. ZITHROMAX [Suspect]
     Active Substance: AZITHROMYCIN DIHYDRATE
     Indication: CHLAMYDIAL INFECTION
     Dosage: ?          QUANTITY:2 CAPSULE(S);?
     Route: 048
     Dates: start: 20170919, end: 20170919
  4. ANTIBIOTICS [Concomitant]
     Active Substance: UNSPECIFIED INGREDIENT
  5. PARACETAMOL [Concomitant]
     Active Substance: ACETAMINOPHEN
  6. IBUPROFEN. [Concomitant]
     Active Substance: IBUPROFEN

REACTIONS (4)
  - Back pain [None]
  - Headache [None]
  - Neck pain [None]
  - Arthralgia [None]

NARRATIVE: CASE EVENT DATE: 20170919
